FAERS Safety Report 6272285-0 (Version None)
Quarter: 2009Q3

REPORT INFORMATION
  Report Type: 
  Country: None (occurrence: None)
  Receive Date: 20090717
  Receipt Date: 20090707
  Transmission Date: 20100115
  Serious: Yes (Hospitalization)
  Sender: FDA-Public Use
  Company Number: TR-ELI_LILLY_AND_COMPANY-TR200907001361

PATIENT
  Age: 45 Year
  Sex: Male

DRUGS (4)
  1. HUMALOG [Suspect]
     Indication: DIABETES MELLITUS
     Dosage: UNK UNK, 2/D
     Route: 058
     Dates: start: 20090101
  2. HUMALOG [Suspect]
     Dosage: 35 IU, EACH EVENING
     Route: 058
     Dates: start: 20090101
  3. GLUCOPHAGE [Concomitant]
     Dosage: UNK UNK, 2/D
     Route: 048
  4. CORASPIN [Concomitant]
     Dosage: UNK UNK, DAILY (1/D)
     Route: 048

REACTIONS (3)
  - ARTERIOSPASM CORONARY [None]
  - BURNING SENSATION [None]
  - HAEMORRHAGE [None]
